FAERS Safety Report 25802753 (Version 1)
Quarter: 2025Q3

REPORT INFORMATION
  Report Type: Spontaneous
  Country: US (occurrence: None)
  Receive Date: 20250914
  Receipt Date: 20250914
  Transmission Date: 20251020
  Serious: Yes (Other)
  Sender: FDA-CTU
  Company Number: None

PATIENT
  Age: 23 Year
  Sex: Female
  Weight: 85.5 kg

DRUGS (1)
  1. LEXAPRO [Suspect]
     Active Substance: ESCITALOPRAM OXALATE
     Indication: Generalised anxiety disorder
     Route: 048
     Dates: start: 20190801, end: 20230401

REACTIONS (4)
  - Panic attack [None]
  - Depersonalisation/derealisation disorder [None]
  - Derealisation [None]
  - Anxiety [None]

NARRATIVE: CASE EVENT DATE: 20230401
